FAERS Safety Report 6049295-1 (Version None)
Quarter: 2009Q1

REPORT INFORMATION
  Report Type: 
  Country: None (occurrence: None)
  Receive Date: 20090123
  Receipt Date: 20090119
  Transmission Date: 20090719
  Serious: Yes (Other)
  Sender: FDA-Public Use
  Company Number: GB-BAUSCH-2008BL005312

PATIENT
  Sex: Female

DRUGS (4)
  1. PREDNISOLONE [Suspect]
     Indication: LUPUS NEPHRITIS
  2. AZATHIOPRINE [Suspect]
     Indication: SYSTEMIC LUPUS ERYTHEMATOSUS
  3. CYCLOPHOSPHAMIDE [Suspect]
     Indication: LUPUS NEPHRITIS
     Route: 042
     Dates: start: 20020101
  4. MYCOPHENOLATE MOFETIL [Suspect]
     Indication: LUPUS NEPHRITIS

REACTIONS (1)
  - IMMUNODEFICIENCY [None]
